FAERS Safety Report 22294184 (Version 1)
Quarter: 2023Q2

REPORT INFORMATION
  Report Type: Report from Study
  Country: GB (occurrence: GB)
  Receive Date: 20230508
  Receipt Date: 20230508
  Transmission Date: 20230721
  Serious: Yes (Other)
  Sender: FDA-Public Use
  Company Number: GB-TEVA-2023-GB-2885387

PATIENT
  Sex: Female

DRUGS (1)
  1. COPAXONE [Suspect]
     Active Substance: GLATIRAMER ACETATE
     Indication: Multiple sclerosis
     Dosage: FORM STRENGTH AND UNIT DOSE: 40MILLIGRAM, 40MG 3 TIMES A WEEK
     Route: 058
     Dates: start: 2016

REACTIONS (4)
  - Pharyngeal swelling [Unknown]
  - Throat tightness [Unknown]
  - Palpitations [Unknown]
  - Heart rate increased [Unknown]
